FAERS Safety Report 5070130-2 (Version None)
Quarter: 2006Q3

REPORT INFORMATION
  Report Type: 
  Country: None (occurrence: None)
  Receive Date: 20060802
  Receipt Date: 20060802
  Transmission Date: 20061208
  Serious: Yes (Life-Threatening, Hospitalization)
  Sender: FDA-Public Use
  Company Number: None

PATIENT
  Sex: Female
  Weight: 57 kg

DRUGS (2)
  1. AVASTIN [Suspect]
     Indication: BREAST CANCER METASTATIC
     Dosage: 10MG/1KG  Q 2 WEEKS IV
     Route: 042
     Dates: start: 20060112, end: 20060805
  2. CHINESE HERBAL MEDICATIONS WITH APPARENT ANTI-ANGIOGENIC PROPERTIES [Concomitant]

REACTIONS (3)
  - ANAEMIA [None]
  - RENAL HAEMORRHAGE [None]
  - RETROPERITONEAL HAEMORRHAGE [None]
